FAERS Safety Report 13341790 (Version 1)
Quarter: 2017Q1

REPORT INFORMATION
  Report Type: Spontaneous
  Country: US (occurrence: US)
  Receive Date: 20170316
  Receipt Date: 20170316
  Transmission Date: 20170428
  Serious: No
  Sender: FDA-Public Use
  Company Number: US-ROCHE-1858217

PATIENT
  Age: 78 Year
  Sex: Female
  Weight: 95.34 kg

DRUGS (2)
  1. ERIVEDGE [Suspect]
     Active Substance: VISMODEGIB
     Indication: BASAL CELL CARCINOMA
     Dosage: ERIVEDGE 150MGS 1 CAPSULE DAILY ORALLY ;ONGOING: YES
     Route: 048
     Dates: start: 20161013
  2. PROMETHAZINE WITH CODEINE [Concomitant]
     Active Substance: CODEINE PHOSPHATE\PROMETHAZINE HYDROCHLORIDE
     Indication: COUGH
     Dosage: PROMETHAZINE CODEINE SYRUP 5MLS ORALLY AT BEDTIME ;ONGOING: UNKNOWN
     Route: 048
     Dates: start: 20161030

REACTIONS (4)
  - Musculoskeletal chest pain [Unknown]
  - Nasopharyngitis [Unknown]
  - Pain in extremity [Unknown]
  - Cough [Unknown]

NARRATIVE: CASE EVENT DATE: 20161025
